FAERS Safety Report 14629768 (Version 2)
Quarter: 2018Q1

REPORT INFORMATION
  Report Type: Spontaneous
  Country: US (occurrence: US)
  Receive Date: 20180313
  Receipt Date: 20180327
  Transmission Date: 20180509
  Serious: Yes (Death, Other)
  Sender: FDA-Public Use
  Company Number: US-ROCHE-2088822

PATIENT
  Age: 69 Year
  Sex: Male

DRUGS (1)
  1. ACTIVASE [Suspect]
     Active Substance: ALTEPLASE
     Indication: ISCHAEMIC STROKE
     Route: 065

REACTIONS (2)
  - Death [Fatal]
  - Haemorrhage intracranial [Unknown]

NARRATIVE: CASE EVENT DATE: 20180302
